FAERS Safety Report 4997904-8 (Version None)
Quarter: 2006Q2

REPORT INFORMATION
  Report Type: 
  Country: None (occurrence: None)
  Receive Date: 20060508
  Receipt Date: 20060425
  Transmission Date: 20061013
  Serious: Yes (Hospitalization)
  Sender: FDA-Public Use
  Company Number: 2006028682

PATIENT
  Age: 52 Year
  Sex: Female
  Weight: 73.0291 kg

DRUGS (13)
  1. SUTENT [Suspect]
     Indication: RENAL CELL CARCINOMA STAGE UNSPECIFIED
     Dosage: 50 MG (50 MG, 1 IN 1 D), ORAL; SEE IMAGE
     Route: 048
     Dates: start: 20050830, end: 20060110
  2. SUTENT [Suspect]
     Indication: RENAL CELL CARCINOMA STAGE UNSPECIFIED
     Dosage: 50 MG (50 MG, 1 IN 1 D), ORAL; SEE IMAGE
     Route: 048
     Dates: start: 20060131, end: 20060226
  3. ALPHA LIOPIC ACID (THIOCTIC ACID) [Concomitant]
  4. CALCIUM (CALCIUM) [Concomitant]
  5. FLAXSEED OIL (LINSEED OIL) [Concomitant]
  6. GINGER (GINGER) [Concomitant]
  7. MULTIVITAMIN [Concomitant]
  8. SYNTHROID [Concomitant]
  9. VITAMIN E [Concomitant]
  10. LEVAQUIN [Concomitant]
  11. PROTONIX [Concomitant]
  12. TEQUIN [Concomitant]
  13. OXYGEN (OXYGEN) [Concomitant]

REACTIONS (1)
  - PNEUMONITIS [None]
